FAERS Safety Report 4363181-4 (Version None)
Quarter: 2004Q2

REPORT INFORMATION
  Report Type: 
  Country: None (occurrence: None)
  Receive Date: 20040524
  Receipt Date: 20031118
  Transmission Date: 20050107
  Serious: No
  Sender: FDA-Public Use
  Company Number: US-GLAXOSMITHKLINE-A0440196A

PATIENT
  Age: 74 Year
  Sex: Male

DRUGS (4)
  1. BACTROBAN [Suspect]
     Indication: CELLULITIS
     Dosage: 1APP SINGLE DOSE
     Route: 061
  2. ALLEGRA [Concomitant]
  3. ADVAIR DISKUS 100/50 [Concomitant]
  4. SINGULAIR [Concomitant]

REACTIONS (4)
  - DERMATITIS CONTACT [None]
  - ERYTHEMA [None]
  - SWELLING [None]
  - URTICARIA [None]
